FAERS Safety Report 13182086 (Version 3)
Quarter: 2017Q1

REPORT INFORMATION
  Report Type: Spontaneous
  Country: US (occurrence: US)
  Receive Date: 20170202
  Receipt Date: 20170224
  Transmission Date: 20170428
  Serious: Yes (Hospitalization, Other)
  Sender: FDA-Public Use
  Company Number: US-SAOL THERAPEUTICS-2017SAO00201

PATIENT
  Age: 72 Year
  Sex: Female
  Weight: 119.27 kg

DRUGS (5)
  1. BUPIVACAINE. [Suspect]
     Active Substance: BUPIVACAINE
     Dosage: 0.3797 MG, \DAY
     Route: 037
  2. COMPOUNDED BACLOFEN [Suspect]
     Active Substance: BACLOFEN
     Indication: LUMBAR RADICULOPATHY
     Dosage: 45.56 ?G, \DAY
     Route: 037
     Dates: start: 20150919
  3. COMPOUNDED BACLOFEN [Suspect]
     Active Substance: BACLOFEN
     Indication: PAIN
     Dosage: UNK
     Route: 037
     Dates: start: 2013, end: 20150919
  4. MORPHINE [Concomitant]
     Active Substance: MORPHINE
     Dosage: UNK
     Route: 048
  5. MORPHINE [Suspect]
     Active Substance: MORPHINE
     Dosage: 9.4 MG, \DAY
     Route: 037

REACTIONS (10)
  - Hyperhidrosis [Unknown]
  - Off label use [Unknown]
  - Device malfunction [Unknown]
  - Pain [Unknown]
  - Tachycardia [Unknown]
  - Mydriasis [Unknown]
  - Hypokalaemia [Recovered/Resolved]
  - Drug withdrawal syndrome [Unknown]
  - Tachypnoea [Unknown]
  - Myocardial infarction [Recovered/Resolved]

NARRATIVE: CASE EVENT DATE: 20170121
